FAERS Safety Report 16708287 (Version 2)
Quarter: 2019Q3

REPORT INFORMATION
  Report Type: Report from Study
  Country: None (occurrence: IE)
  Receive Date: 20190816
  Receipt Date: 20190912
  Transmission Date: 20191004
  Serious: Yes (Hospitalization)
  Sender: FDA-Public Use
  Company Number: IE-ABBVIE-19K-229-2887291-00

PATIENT
  Age: 67 Year
  Sex: Female

DRUGS (1)
  1. HUMIRA [Suspect]
     Active Substance: ADALIMUMAB
     Indication: RHEUMATOID ARTHRITIS
     Route: 058
     Dates: start: 20180209

REACTIONS (21)
  - Pain [Unknown]
  - Arthralgia [Unknown]
  - Back pain [Recovering/Resolving]
  - Intervertebral disc degeneration [Unknown]
  - Hypotension [Recovering/Resolving]
  - Intervertebral disc compression [Recovering/Resolving]
  - Fall [Recovered/Resolved]
  - Intervertebral disc protrusion [Recovering/Resolving]
  - Intervertebral disc space narrowing [Unknown]
  - Limb mass [Not Recovered/Not Resolved]
  - Musculoskeletal disorder [Not Recovered/Not Resolved]
  - Embolism venous [Recovering/Resolving]
  - Peripheral coldness [Unknown]
  - Hyperreflexia [Unknown]
  - Mobility decreased [Not Recovered/Not Resolved]
  - Lumbar radiculopathy [Recovering/Resolving]
  - Fall [Not Recovered/Not Resolved]
  - Muscle spasms [Not Recovered/Not Resolved]
  - Pain in extremity [Recovering/Resolving]
  - Muscular weakness [Recovering/Resolving]
  - Paresis [Not Recovered/Not Resolved]

NARRATIVE: CASE EVENT DATE: 201812
